FAERS Safety Report 5745023-5 (Version None)
Quarter: 2008Q2

REPORT INFORMATION
  Report Type: 
  Country: None (occurrence: None)
  Receive Date: 20080521
  Receipt Date: 20080512
  Transmission Date: 20081010
  Serious: Yes (Other)
  Sender: FDA-Public Use
  Company Number: PHEH2008US02783

PATIENT
  Age: 55 Year
  Sex: Male

DRUGS (1)
  1. SANDOSTATIN [Suspect]
     Indication: CARCINOID SYNDROME
     Dates: start: 20030101

REACTIONS (10)
  - GAIT DISTURBANCE [None]
  - HIATUS HERNIA [None]
  - HYPOTONIA [None]
  - INFLAMMATION [None]
  - INGUINAL HERNIA [None]
  - METASTASES TO LIVER [None]
  - METASTASES TO PANCREAS [None]
  - METASTASES TO SMALL INTESTINE [None]
  - OEDEMA PERIPHERAL [None]
  - SENSATION OF HEAVINESS [None]
